FAERS Safety Report 4633129-3 (Version None)
Quarter: 2005Q2

REPORT INFORMATION
  Report Type: 
  Country: None (occurrence: None)
  Receive Date: 20050412
  Receipt Date: 20050318
  Transmission Date: 20051028
  Serious: Yes (Other)
  Sender: FDA-Public Use
  Company Number: FR-GLAXOSMITHKLINE-B0375291A

PATIENT
  Age: 45 Year
  Sex: Female
  Weight: 40 kg

DRUGS (2)
  1. NARAMIG [Suspect]
     Indication: MIGRAINE
     Dosage: 2.5MG THREE TIMES PER DAY
     Route: 048
     Dates: start: 20000101
  2. MYOLASTAN [Concomitant]
     Route: 048

REACTIONS (2)
  - DRUG ABUSER [None]
  - MIGRAINE [None]
